FAERS Safety Report 10024702 (Version 1)
Quarter: 2014Q1

REPORT INFORMATION
  Report Type: Spontaneous
  Country: US (occurrence: None)
  Receive Date: 20140318
  Receipt Date: 20140318
  Transmission Date: 20141002
  Serious: Yes (Hospitalization)
  Sender: FDA-Public Use
  Company Number: HA14-075-AE

PATIENT
  Age: 50 Year
  Sex: Female

DRUGS (3)
  1. SMZ / TMP [Suspect]
     Indication: RASH
     Dosage: 2 TABLETS A DAY, ORAL
     Route: 048
     Dates: start: 20140217, end: 20140225
  2. LISINOPRIL [Concomitant]
  3. EFFEXOR [Concomitant]

REACTIONS (11)
  - Tremor [None]
  - Vision blurred [None]
  - Speech disorder [None]
  - Disturbance in attention [None]
  - Nervous system disorder [None]
  - Lip swelling [None]
  - Dysphonia [None]
  - Throat tightness [None]
  - Urticaria [None]
  - Pruritus [None]
  - Urticaria [None]
